FAERS Safety Report 18397149 (Version 1)
Quarter: 2020Q4

REPORT INFORMATION
  Report Type: Spontaneous
  Country: US (occurrence: US)
  Receive Date: 20201019
  Receipt Date: 20201019
  Transmission Date: 20210114
  Serious: No
  Sender: FDA-Public Use
  Company Number: US-HORIZON-KRY-1469-2020

PATIENT
  Sex: Male

DRUGS (4)
  1. MARIJUANA [Concomitant]
     Active Substance: CANNABIS SATIVA SUBSP. INDICA TOP
  2. OXYCODONE [Concomitant]
     Active Substance: OXYCODONE
  3. GABAPENTIN. [Concomitant]
     Active Substance: GABAPENTIN
  4. KRYSTEXXA [Suspect]
     Active Substance: PEGLOTICASE
     Indication: GOUT

REACTIONS (19)
  - Blindness transient [Unknown]
  - Feeling drunk [Unknown]
  - Arthralgia [Unknown]
  - Myalgia [Unknown]
  - Pain [Unknown]
  - Gout [Unknown]
  - Paraesthesia [Unknown]
  - Drooling [Unknown]
  - Gait disturbance [Unknown]
  - Hypoaesthesia oral [Unknown]
  - Feeling hot [Unknown]
  - Peripheral swelling [Unknown]
  - Transient ischaemic attack [Unknown]
  - Burning sensation [Unknown]
  - Discharge [Unknown]
  - Appetite disorder [Unknown]
  - Crepitations [Unknown]
  - Headache [Unknown]
  - Joint swelling [Unknown]
